FAERS Safety Report 9921429 (Version 1)
Quarter: 2014Q1

REPORT INFORMATION
  Report Type: Spontaneous
  Country: AU (occurrence: AU)
  Receive Date: 20140225
  Receipt Date: 20140225
  Transmission Date: 20141002
  Serious: Yes (Disabling, Other)
  Sender: FDA-Public Use
  Company Number: AU-ROCHE-1351572

PATIENT
  Sex: Female

DRUGS (4)
  1. XELODA [Suspect]
     Indication: BREAST CANCER
     Route: 065
  2. XELODA [Suspect]
     Indication: BONE CANCER
     Route: 065
  3. XELODA [Suspect]
     Indication: HEPATIC CANCER
  4. DEXAMETHASONE [Concomitant]

REACTIONS (6)
  - VIIth nerve paralysis [Unknown]
  - Hypoaesthesia [Unknown]
  - Cognitive disorder [Unknown]
  - Cataract [Unknown]
  - Vision blurred [Unknown]
  - Eye discharge [Unknown]
